FAERS Safety Report 6884071-9 (Version None)
Quarter: 2010Q3

REPORT INFORMATION
  Report Type: 
  Country: None (occurrence: None)
  Receive Date: 20100729
  Receipt Date: 20100723
  Transmission Date: 20110219
  Serious: Yes (Other)
  Sender: FDA-Public Use
  Company Number: US-AMGEN-QUU426419

PATIENT
  Sex: Male

DRUGS (17)
  1. EPOGEN [Suspect]
     Indication: DIALYSIS
     Dates: start: 20060201, end: 20100501
  2. VENOFER [Concomitant]
  3. ZEMPLAR [Concomitant]
  4. LANTUS [Concomitant]
  5. DULCOLAX [Concomitant]
     Route: 054
  6. IMODIUM [Concomitant]
  7. LEVOTHYROXINE SODIUM [Concomitant]
  8. LORTAB [Concomitant]
  9. SIMVASTATIN [Concomitant]
  10. ASCORBIC ACID [Concomitant]
  11. MULTI-VITAMINS [Concomitant]
  12. OMEPRAZOLE [Concomitant]
  13. COREG [Concomitant]
  14. DOCUSATE [Concomitant]
  15. FLOMAX [Concomitant]
  16. PROMETHAZINE [Concomitant]
  17. ACETAMINOPHEN [Concomitant]

REACTIONS (2)
  - LUNG NEOPLASM MALIGNANT [None]
  - THERAPEUTIC RESPONSE DECREASED [None]
